FAERS Safety Report 15028482 (Version 1)
Quarter: 2018Q2

REPORT INFORMATION
  Report Type: Report from Study
  Country: CA (occurrence: CA)
  Receive Date: 20180619
  Receipt Date: 20180619
  Transmission Date: 20180711
  Serious: Yes (Other)
  Sender: FDA-Public Use
  Company Number: CA-GLAXOSMITHKLINE-CA2018GSK103290

PATIENT
  Age: 81 Year
  Sex: Male

DRUGS (14)
  1. NUCALA [Suspect]
     Active Substance: MEPOLIZUMAB
     Indication: PRODUCT USED FOR UNKNOWN INDICATION
     Dosage: UNK
     Route: 042
     Dates: start: 20171219
  2. DOMPERIDONE [Concomitant]
     Active Substance: DOMPERIDONE
     Indication: PRODUCT USED FOR UNKNOWN INDICATION
     Dosage: UNK
  3. SALBUTAMOL SULPHATE [Suspect]
     Active Substance: ALBUTEROL SULFATE
     Indication: PRODUCT USED FOR UNKNOWN INDICATION
     Dosage: UNK
  4. SINGULAIR [Suspect]
     Active Substance: MONTELUKAST SODIUM
     Indication: PRODUCT USED FOR UNKNOWN INDICATION
     Dosage: UNK
  5. ASPIRIN. [Concomitant]
     Active Substance: ASPIRIN
     Indication: PRODUCT USED FOR UNKNOWN INDICATION
     Dosage: 81 MG, 1D
  6. ZENHALE [Suspect]
     Active Substance: FORMOTEROL FUMARATE\MOMETASONE FUROATE
     Indication: RESPIRATORY DISORDER
     Dosage: 2 PUFF(S), 1D
  7. AMILORIDE [Concomitant]
     Active Substance: AMILORIDE
     Indication: PRODUCT USED FOR UNKNOWN INDICATION
     Dosage: UNK
  8. SPIRIVA [Suspect]
     Active Substance: TIOTROPIUM BROMIDE MONOHYDRATE
     Indication: PRODUCT USED FOR UNKNOWN INDICATION
     Dosage: 2 PUFF(S), 1D
  9. LYRICA [Concomitant]
     Active Substance: PREGABALIN
     Indication: PRODUCT USED FOR UNKNOWN INDICATION
     Dosage: UNK
  10. MIRABEGRON [Concomitant]
     Active Substance: MIRABEGRON
     Indication: PRODUCT USED FOR UNKNOWN INDICATION
     Dosage: UNK
  11. TECTA [Concomitant]
     Active Substance: PANTOPRAZOLE MAGNESIUM
     Indication: PRODUCT USED FOR UNKNOWN INDICATION
     Dosage: UNK
  12. PLAVIX [Concomitant]
     Active Substance: CLOPIDOGREL BISULFATE
     Indication: PRODUCT USED FOR UNKNOWN INDICATION
     Dosage: 75 MG, 1D
  13. ATENOLOL. [Concomitant]
     Active Substance: ATENOLOL
     Indication: PROSTATITIS
     Dosage: UNK
  14. EZETROL [Concomitant]
     Active Substance: EZETIMIBE
     Indication: PRODUCT USED FOR UNKNOWN INDICATION
     Dosage: UNK

REACTIONS (17)
  - Asthma [Unknown]
  - Exercise tolerance decreased [Unknown]
  - Dyskinesia oesophageal [Unknown]
  - Dyspnoea [Not Recovered/Not Resolved]
  - Peripheral swelling [Recovering/Resolving]
  - Blood test abnormal [Unknown]
  - Gastrooesophageal reflux disease [Unknown]
  - Dyspnoea paroxysmal nocturnal [Unknown]
  - Aspiration [Unknown]
  - Restrictive pulmonary disease [Unknown]
  - Sputum abnormal [Unknown]
  - Pulmonary mass [Not Recovered/Not Resolved]
  - Cough [Unknown]
  - Orthopnoea [Unknown]
  - Drug ineffective [Unknown]
  - Dyspnoea exertional [Unknown]
  - Anaemia macrocytic [Unknown]

NARRATIVE: CASE EVENT DATE: 20171113
